FAERS Safety Report 25930347 (Version 1)
Quarter: 2025Q4

REPORT INFORMATION
  Report Type: Other
  Country: CA (occurrence: CA)
  Receive Date: 20251016
  Receipt Date: 20251016
  Transmission Date: 20260118
  Serious: Yes (Disabling, Other)
  Sender: APOTEX
  Company Number: CA-PGRTD-001152093

PATIENT
  Age: 12 Year
  Sex: Female
  Weight: 46.2 kg

DRUGS (2)
  1. BUSULFAN [Suspect]
     Active Substance: BUSULFAN
     Indication: Cord blood transplant therapy
     Dosage: 110 MILLIGRAM
     Route: 042
  2. CYCLOPHOSPHAMIDE [Suspect]
     Active Substance: CYCLOPHOSPHAMIDE
     Indication: Cord blood transplant therapy
     Dosage: 775 MILLIGRAM
     Route: 065

REACTIONS (2)
  - Ovarian failure [Unknown]
  - Pubertal disorder [Unknown]
